FAERS Safety Report 4378055-2 (Version None)
Quarter: 2004Q2

REPORT INFORMATION
  Report Type: 
  Country: None (occurrence: None)
  Receive Date: 20040609
  Receipt Date: 20040520
  Transmission Date: 20050107
  Serious: Yes (Death, Other)
  Sender: FDA-Public Use
  Company Number: US_031299292

PATIENT
  Age: 93 Year
  Sex: Male
  Weight: 66 kg

DRUGS (7)
  1. XIGRIS (DROTRECOGIN ALFA (ACTIVATED) ) [Suspect]
     Indication: SEPSIS
     Dosage: 20 MG OTHER
     Route: 050
     Dates: start: 20031202, end: 20031206
  2. DOBUTAMINE [Concomitant]
  3. INSULIN [Concomitant]
  4. DOPAMINE HCL [Concomitant]
  5. NORADRENALINE [Concomitant]
  6. SEDATIVE [Concomitant]
  7. CORTICOSTEROID NOS [Concomitant]

REACTIONS (5)
  - COAGULATION TIME PROLONGED [None]
  - HAEMATOCRIT DECREASED [None]
  - HAEMORRHAGE [None]
  - MULTI-ORGAN FAILURE [None]
  - PLATELET COUNT DECREASED [None]
